FAERS Safety Report 5377693-8 (Version None)
Quarter: 2007Q3

REPORT INFORMATION
  Report Type: 
  Country: None (occurrence: None)
  Receive Date: 20070703
  Receipt Date: 20070702
  Transmission Date: 20080115
  Serious: Yes (Death)
  Sender: FDA-Public Use
  Company Number: US-ROXANE LABORATORIES, INC-2007-DE-03804GD

PATIENT
  Age: 10 Year
  Sex: Female

DRUGS (9)
  1. AMANTADINE HCL [Suspect]
     Indication: RABIES
  2. MIDAZOLAM HCL [Suspect]
     Indication: RABIES
  3. ASCORBIC ACID [Suspect]
     Indication: RABIES
  4. PHENOBARBITAL TAB [Suspect]
     Indication: RABIES
  5. KETAMINE HCL [Suspect]
     Indication: RABIES
  6. RIBAVIRIN [Suspect]
     Indication: RABIES
     Route: 042
  7. COENZYME Q10 [Suspect]
     Indication: RABIES
  8. L-ARGININE [Suspect]
     Indication: RABIES
  9. TETRAHYDROBIOPTERIN [Suspect]
     Indication: RABIES

REACTIONS (7)
  - BRAIN HERNIATION [None]
  - DIABETES INSIPIDUS [None]
  - DRUG INEFFECTIVE [None]
  - INAPPROPRIATE ANTIDIURETIC HORMONE SECRETION [None]
  - INTRACRANIAL PRESSURE INCREASED [None]
  - INTRACRANIAL VENOUS SINUS THROMBOSIS [None]
  - PANCREATITIS [None]
